FAERS Safety Report 4304505-3 (Version None)
Quarter: 2004Q1

REPORT INFORMATION
  Report Type: 
  Country: None (occurrence: None)
  Receive Date: 20040224
  Receipt Date: 20040216
  Transmission Date: 20041129
  Serious: Yes (Other)
  Sender: FDA-Public Use
  Company Number: 2004199832DE

PATIENT
  Age: 47 Year
  Sex: Male
  Weight: 128 kg

DRUGS (2)
  1. EPLERENONE [Suspect]
     Dosage: 50 MG, DAILY, ORAL
     Route: 048
     Dates: start: 20040209, end: 20040210
  2. ALDACTONE [Concomitant]

REACTIONS (1)
  - GENERALISED ERYTHEMA [None]
